FAERS Safety Report 14602145 (Version 2)
Quarter: 2018Q2

REPORT INFORMATION
  Report Type: Spontaneous
  Country: US (occurrence: US)
  Receive Date: 20180306
  Receipt Date: 20180406
  Transmission Date: 20180711
  Serious: No
  Sender: FDA-Public Use
  Company Number: US-009507513-1803USA000287

PATIENT
  Age: 66 Year
  Sex: Female

DRUGS (2)
  1. CLARINEX [Suspect]
     Active Substance: DESLORATADINE
     Indication: CHRONIC SINUSITIS
     Dosage: 1 DF, QD
     Route: 048
     Dates: start: 1998
  2. CLARINEX [Suspect]
     Active Substance: DESLORATADINE
     Indication: RHINITIS ALLERGIC

REACTIONS (4)
  - Product use in unapproved indication [Unknown]
  - Ear infection [Not Recovered/Not Resolved]
  - Circumstance or information capable of leading to medication error [Unknown]
  - Product supply issue [Unknown]

NARRATIVE: CASE EVENT DATE: 201803
